FAERS Safety Report 17992088 (Version 1)
Quarter: 2020Q3

REPORT INFORMATION
  Report Type: Spontaneous
  Country: FR (occurrence: FR)
  Receive Date: 20200708
  Receipt Date: 20200708
  Transmission Date: 20201103
  Serious: Yes (Hospitalization)
  Sender: FDA-Public Use
  Company Number: FR-TEVA-2020-FR-1797166

PATIENT
  Age: 63 Year
  Sex: Male

DRUGS (1)
  1. LINEZOLIDE [Suspect]
     Active Substance: LINEZOLID
     Indication: TUBERCULOSIS
     Dosage: 600 MILLIGRAM
     Route: 048
     Dates: start: 20200117, end: 20200430

REACTIONS (4)
  - Abdominal pain [Recovered/Resolved]
  - Weight decreased [Recovering/Resolving]
  - Pancytopenia [Recovering/Resolving]
  - Vomiting [Recovered/Resolved]

NARRATIVE: CASE EVENT DATE: 20200316
